FAERS Safety Report 5822459-5 (Version None)
Quarter: 2008Q3

REPORT INFORMATION
  Report Type: 
  Country: None (occurrence: None)
  Receive Date: 20080725
  Receipt Date: 20080220
  Transmission Date: 20090109
  Serious: No
  Sender: FDA-Public Use
  Company Number: US-AMGEN-KDL266529

PATIENT
  Sex: Female
  Weight: 68.1 kg

DRUGS (11)
  1. PROCRIT [Suspect]
     Indication: ANAEMIA
     Route: 058
     Dates: start: 20060101
  2. ENBREL [Concomitant]
     Route: 058
  3. PLAVIX [Concomitant]
     Route: 048
  4. PROPRANOLOL [Concomitant]
     Route: 048
  5. LEVOTHYROXINE SODIUM [Concomitant]
     Route: 048
  6. ASPIRIN [Concomitant]
     Route: 048
  7. TRICOR [Concomitant]
     Route: 048
  8. LACTULOSE [Concomitant]
     Route: 048
  9. MIRALAX [Concomitant]
     Route: 048
  10. LITHIUM [Concomitant]
  11. PROTONIX [Concomitant]
     Dates: start: 20071201

REACTIONS (2)
  - PLATELET COUNT DECREASED [None]
  - WHITE BLOOD CELL COUNT DECREASED [None]
